FAERS Safety Report 6401243-8 (Version None)
Quarter: 2009Q4

REPORT INFORMATION
  Report Type: 
  Country: None (occurrence: None)
  Receive Date: 20091015
  Receipt Date: 20070402
  Transmission Date: 20100525
  Serious: Yes (Disabling)
  Sender: FDA-Public Use
  Company Number: US-ASTRAZENECA-2006UW11082

PATIENT
  Sex: Female
  Weight: 121.5 kg

DRUGS (10)
  1. SEROQUEL [Suspect]
     Dosage: 25 MG DISPENSED
     Route: 048
     Dates: start: 20030722
  2. ZESTRIL [Concomitant]
     Dosage: 10-20 MG
     Route: 048
     Dates: start: 20040417
  3. ACTOS [Concomitant]
     Dates: start: 20060621
  4. ASPIRIN [Concomitant]
     Dates: start: 20060621
  5. HYDROCHLOROTHIAZIDE [Concomitant]
     Dosage: 12.5-25 MG
     Route: 048
     Dates: start: 20020930
  6. ZOCOR [Concomitant]
     Dosage: 20-40 MG
     Route: 048
     Dates: start: 20050401
  7. TRICOR [Concomitant]
     Route: 048
     Dates: start: 20060621
  8. NORVASC [Concomitant]
     Route: 048
     Dates: start: 20040309, end: 20040817
  9. AXID [Concomitant]
     Indication: NIGHT SWEATS
     Dosage: 150-300 MG
     Dates: start: 20040309
  10. LEVOXYL/LEVOTHROID [Concomitant]
     Dosage: 75-150 MCG
     Route: 048
     Dates: start: 20020101

REACTIONS (1)
  - ILL-DEFINED DISORDER [None]
